FAERS Safety Report 16051642 (Version 1)
Quarter: 2019Q1

REPORT INFORMATION
  Report Type: Spontaneous
  Country: US (occurrence: US)
  Receive Date: 20190207
  Receipt Date: 20190207
  Transmission Date: 20190418
  Serious: No
  Sender: FDA-Public Use
  Company Number: None

PATIENT
  Age: 28 Year
  Sex: Female
  Weight: 143.79 kg

DRUGS (1)
  1. TALTZ [Suspect]
     Active Substance: IXEKIZUMAB
     Indication: PSORIASIS
     Dosage: INJECT 80MG (1 PEN) SUBCUTANEOUSLY EVERY 2  WEEKS AT WEEKS  2 -12  AS DIRECTED
     Route: 058
     Dates: start: 201901

REACTIONS (7)
  - Nausea [None]
  - Dysphagia [None]
  - Limb injury [None]
  - Constipation [None]
  - Sensation of foreign body [None]
  - Sinus disorder [None]
  - Contusion [None]
